FAERS Safety Report 7795384-0 (Version None)
Quarter: 2011Q3

REPORT INFORMATION
  Report Type: 
  Country: None (occurrence: None)
  Receive Date: 20110930
  Receipt Date: 20110914
  Transmission Date: 20111222
  Serious: Yes (Other)
  Sender: FDA-Public Use
  Company Number: JPI-P-017063

PATIENT
  Age: 69 Year
  Sex: Male
  Weight: 127.0072 kg

DRUGS (4)
  1. XYREM [Suspect]
     Indication: CATAPLEXY
     Dosage: 10 GM (5 GM, 2 IN 1 D), ORAL, 12 GM (6 GM, 2 IN 1 D), ORAL
     Route: 048
     Dates: start: 20020923
  2. XYREM [Suspect]
     Indication: CATAPLEXY
     Dosage: 10 GM (5 GM, 2 IN 1 D), ORAL, 12 GM (6 GM, 2 IN 1 D), ORAL
     Route: 048
     Dates: start: 20110513
  3. UNSPECIFIED HEART MEDICATIONS (UNKNOWN) [Suspect]
     Indication: CARDIAC DISORDER
     Dosage: ORAL
     Route: 048
  4. UNSPECIFIED THYROID MEDICINE [Concomitant]

REACTIONS (3)
  - LOSS OF CONSCIOUSNESS [None]
  - DEHYDRATION [None]
  - WEIGHT DECREASED [None]
